FAERS Safety Report 20417684 (Version 4)
Quarter: 2022Q2

REPORT INFORMATION
  Report Type: Report from Study
  Country: US (occurrence: US)
  Receive Date: 20220202
  Receipt Date: 20220519
  Transmission Date: 20220721
  Serious: No
  Sender: FDA-Public Use
  Company Number: US-NOVARTISTESTPH-NVSC2022US022758

PATIENT
  Sex: Female

DRUGS (1)
  1. COSENTYX [Suspect]
     Active Substance: SECUKINUMAB
     Indication: Axial spondyloarthritis
     Dosage: UNK, OTHER (QW FOR 5 WEEKS THEN QMO)
     Route: 058

REACTIONS (5)
  - Oropharyngeal pain [Recovered/Resolved with Sequelae]
  - Discomfort [Recovering/Resolving]
  - Injection site bruising [Unknown]
  - Pain [Unknown]
  - Paraesthesia [Unknown]
